FAERS Safety Report 9359712 (Version 1)
Quarter: 2013Q2

REPORT INFORMATION
  Report Type: Spontaneous
  Country: FR (occurrence: FR)
  Receive Date: 20130621
  Receipt Date: 20130621
  Transmission Date: 20140414
  Serious: Yes (Hospitalization)
  Sender: FDA-Public Use
  Company Number: FR-ROCHE-1239314

PATIENT
  Age: 65 Year
  Sex: Male

DRUGS (14)
  1. CELLCEPT [Suspect]
     Indication: HEART TRANSPLANT
     Route: 065
     Dates: end: 20121115
  2. NEORAL [Concomitant]
  3. TAHOR [Concomitant]
  4. PREDNISONE [Concomitant]
  5. SOLUPRED (FRANCE) [Concomitant]
  6. EUPRESSYL [Concomitant]
  7. ATACAND [Concomitant]
  8. SECTRAL [Concomitant]
  9. LASILIX [Concomitant]
  10. MIMPARA [Concomitant]
  11. EZETROL [Concomitant]
  12. INSPRA [Concomitant]
  13. NOVOMIX [Concomitant]
  14. MYFORTIC [Concomitant]
     Route: 065

REACTIONS (5)
  - Pancreatitis [Not Recovered/Not Resolved]
  - Nausea [Recovered/Resolved]
  - Vomiting [Recovered/Resolved]
  - Weight decreased [Recovered/Resolved]
  - Lipase increased [Not Recovered/Not Resolved]
